FAERS Safety Report 9805050 (Version 2)
Quarter: 2014Q1

REPORT INFORMATION
  Report Type: Spontaneous
  Country: US (occurrence: US)
  Receive Date: 20140109
  Receipt Date: 20140204
  Transmission Date: 20141002
  Serious: Yes (Hospitalization)
  Sender: FDA-Public Use
  Company Number: US-BIOGENIDEC-2014BI001382

PATIENT
  Age: 66 Year
  Sex: Male

DRUGS (12)
  1. AVONEX [Suspect]
     Indication: MULTIPLE SCLEROSIS
     Route: 030
     Dates: start: 19980601
  2. AVONEX [Suspect]
     Indication: MULTIPLE SCLEROSIS
     Route: 030
     Dates: end: 20130701
  3. DIONEX [Concomitant]
  4. VITAMIN C [Concomitant]
  5. ACETYLSALICYLIC ACID [Concomitant]
  6. BACLOFEN [Concomitant]
  7. LISINOPRIL [Concomitant]
  8. DETROL LA [Concomitant]
  9. MACROBID [Concomitant]
  10. PROTONIX [Concomitant]
  11. PRAVACHOL [Concomitant]
  12. ZANAFLEX [Concomitant]

REACTIONS (7)
  - Pneumonia aspiration [Recovered/Resolved]
  - Urosepsis [Recovered/Resolved]
  - Secondary progressive multiple sclerosis [Unknown]
  - Neurogenic bladder [Unknown]
  - Dysarthria [Unknown]
  - Dysphagia [Not Recovered/Not Resolved]
  - Influenza like illness [Recovered/Resolved]
